FAERS Safety Report 15606413 (Version 1)
Quarter: 2018Q4

REPORT INFORMATION
  Report Type: Spontaneous
  Country: US (occurrence: US)
  Receive Date: 20181110
  Receipt Date: 20181110
  Transmission Date: 20190205
  Serious: No
  Sender: FDA-Public Use
  Company Number: None

PATIENT
  Age: 45 Year
  Sex: Female
  Weight: 67.5 kg

DRUGS (6)
  1. ZANTAC [Concomitant]
     Active Substance: RANITIDINE HYDROCHLORIDE
  2. AMERGE [Concomitant]
     Active Substance: NARATRIPTAN HYDROCHLORIDE
  3. VYVANSE [Concomitant]
     Active Substance: LISDEXAMFETAMINE DIMESYLATE
  4. AIMOVIG [Suspect]
     Active Substance: ERENUMAB-AOOE
     Indication: MIGRAINE
     Dosage: ?          QUANTITY:1 INJECTION(S);OTHER FREQUENCY:1 PER MONTH;?
     Route: 030
     Dates: start: 20180810, end: 20181106
  5. ZOLOFT [Concomitant]
     Active Substance: SERTRALINE HYDROCHLORIDE
  6. MOTRIN [Concomitant]
     Active Substance: IBUPROFEN

REACTIONS (4)
  - Migraine [None]
  - Dyspepsia [None]
  - Myalgia [None]
  - Pain in extremity [None]

NARRATIVE: CASE EVENT DATE: 20181102
